FAERS Safety Report 10019636 (Version 1)
Quarter: 2014Q1

REPORT INFORMATION
  Report Type: Spontaneous
  Country: FR (occurrence: FR)
  Receive Date: 20140318
  Receipt Date: 20140318
  Transmission Date: 20141002
  Serious: Yes (Other)
  Sender: FDA-Public Use
  Company Number: FR-PFIZER INC-2014075809

PATIENT
  Age: 75 Year
  Sex: Male

DRUGS (1)
  1. INSPRA [Suspect]
     Dosage: 25 MG, UNK

REACTIONS (1)
  - Renal impairment [Recovering/Resolving]
